FAERS Safety Report 4684403-6 (Version None)
Quarter: 2005Q2

REPORT INFORMATION
  Report Type: 
  Country: None (occurrence: None)
  Receive Date: 20050531
  Receipt Date: 20040526
  Transmission Date: 20051028
  Serious: Yes (Death, Hospitalization)
  Sender: FDA-Public Use
  Company Number: 200413905US

PATIENT
  Age: 69 Year
  Sex: Female
  Weight: 100 kg

DRUGS (1)
  1. LOVENOX [Suspect]
     Indication: DEEP VEIN THROMBOSIS
     Dosage: IM
     Route: 030

REACTIONS (2)
  - ABDOMINAL HAEMATOMA [None]
  - HYPOTENSION [None]
